FAERS Safety Report 15450792 (Version 1)
Quarter: 2018Q4

REPORT INFORMATION
  Report Type: Spontaneous
  Country: US (occurrence: US)
  Receive Date: 20181001
  Receipt Date: 20181001
  Transmission Date: 20190204
  Serious: Yes (Other)
  Sender: FDA-Public Use
  Company Number: US-BAYER-2018-178710

PATIENT
  Age: 18 Year
  Sex: Female

DRUGS (1)
  1. OCELLA [Suspect]
     Active Substance: DROSPIRENONE\ETHINYL ESTRADIOL
     Indication: SKIN DISORDER
     Dosage: UNK
     Route: 048
     Dates: start: 201804, end: 201806

REACTIONS (3)
  - Depression [Not Recovered/Not Resolved]
  - Product use in unapproved indication [None]
  - Depression suicidal [None]
